FAERS Safety Report 8406213-6 (Version None)
Quarter: 2012Q1

REPORT INFORMATION
  Report Type: 
  Country: None (occurrence: None)
  Receive Date: 20120329
  Receipt Date: 20030714
  Transmission Date: 20120608
  Serious: Yes (Other)
  Sender: FDA-Public Use
  Company Number: JP-2012-12700

PATIENT

DRUGS (3)
  1. PLETAL [Suspect]
  2. PRORENAL (LIMAPROST) [Concomitant]
  3. WARFARIN K (WARFARIN POTASSIUIM) [Concomitant]

REACTIONS (4)
  - CEREBRAL THROMBOSIS [None]
  - DISEASE RECURRENCE [None]
  - HEADACHE [None]
  - CEREBRAL INFARCTION [None]
